FAERS Safety Report 5712299-X (Version None)
Quarter: 2008Q2

REPORT INFORMATION
  Report Type: 
  Country: None (occurrence: None)
  Receive Date: 20080421
  Receipt Date: 20080421
  Transmission Date: 20081010
  Serious: Yes (Other)
  Sender: FDA-Public Use
  Company Number: None

PATIENT
  Age: 26 Year
  Sex: Male
  Weight: 75.7507 kg

DRUGS (1)
  1. NEXIUM [Suspect]
     Dosage: 20 OR 40 MLG 2 TIMES A DAY PO
     Route: 048

REACTIONS (4)
  - ARTHRALGIA [None]
  - ARTHRITIS [None]
  - JOINT DEPOSIT [None]
  - MUSCULOSKELETAL PAIN [None]
